FAERS Safety Report 4881172-1 (Version None)
Quarter: 2006Q1

REPORT INFORMATION
  Report Type: 
  Country: None (occurrence: None)
  Receive Date: 20060116
  Receipt Date: 20060105
  Transmission Date: 20060701
  Serious: Yes (Hospitalization)
  Sender: FDA-Public Use
  Company Number: FR-JNJFOC-20060101538

PATIENT
  Age: 25 Year
  Sex: Female
  Weight: 60 kg

DRUGS (4)
  1. REMICADE [Suspect]
     Indication: CROHN'S DISEASE
     Dosage: 6TH INFUSION
     Route: 042
  2. POLARAMINE [Suspect]
     Indication: PROPHYLAXIS
     Route: 042
  3. HYDROCORTISONE [Suspect]
     Indication: PROPHYLAXIS
     Route: 065
  4. IMUREL [Concomitant]
     Route: 048

REACTIONS (3)
  - ATRIOVENTRICULAR BLOCK COMPLETE [None]
  - MALAISE [None]
  - SYNCOPE [None]
